FAERS Safety Report 16343903 (Version 1)
Quarter: 2019Q2

REPORT INFORMATION
  Report Type: Spontaneous
  Country: US (occurrence: US)
  Receive Date: 20190522
  Receipt Date: 20190522
  Transmission Date: 20190711
  Serious: No
  Sender: FDA-Public Use
  Company Number: US-009507513-1905USA009989

PATIENT
  Sex: Female

DRUGS (2)
  1. NEXPLANON [Suspect]
     Active Substance: ETONOGESTREL
     Indication: CONTRACEPTION
     Dosage: UNK
     Route: 059
  2. IMPLANON [Concomitant]
     Active Substance: ETONOGESTREL
     Dosage: 1 DOSAGE FORM
     Route: 059

REACTIONS (1)
  - Dermatitis allergic [Unknown]
